FAERS Safety Report 6607577-6 (Version None)
Quarter: 2010Q1

REPORT INFORMATION
  Report Type: 
  Country: None (occurrence: None)
  Receive Date: 20100301
  Receipt Date: 20100215
  Transmission Date: 20100710
  Serious: Yes (Other)
  Sender: FDA-Public Use
  Company Number: US-ELI_LILLY_AND_COMPANY-US201002004977

PATIENT
  Sex: Female

DRUGS (5)
  1. FORTEO [Suspect]
     Indication: OSTEOPOROSIS
     Dosage: 20 UG, DAILY (1/D)
     Dates: start: 20090401
  2. ALDACTONE [Concomitant]
     Dosage: UNK, UNKNOWN
  3. LASIX [Concomitant]
     Dosage: UNK, UNKNOWN
  4. METOPROLOL TARTRATE [Concomitant]
     Dosage: UNK, UNKNOWN
  5. COZAAR [Concomitant]
     Dosage: UNK, UNKNOWN

REACTIONS (3)
  - CARDIAC DISORDER [None]
  - CARDIAC FAILURE CONGESTIVE [None]
  - LUNG DISORDER [None]
